FAERS Safety Report 18490998 (Version 2)
Quarter: 2020Q4

REPORT INFORMATION
  Report Type: Spontaneous
  Country: JP (occurrence: JP)
  Receive Date: 20201111
  Receipt Date: 20201207
  Transmission Date: 20210114
  Serious: Yes (Other)
  Sender: FDA-Public Use
  Company Number: JP-ABBVIE-20P-087-3646812-00

PATIENT
  Age: 30 Year
  Sex: Female

DRUGS (1)
  1. LEUPLIN [Suspect]
     Active Substance: LEUPROLIDE ACETATE
     Indication: UTERINE LEIOMYOMA
     Dosage: UNK UNK, MONTHLY
     Route: 050

REACTIONS (3)
  - Pituitary tumour [Unknown]
  - Adnexal torsion [Unknown]
  - Ovarian hyperstimulation syndrome [Unknown]
